FAERS Safety Report 12990297 (Version 2)
Quarter: 2017Q1

REPORT INFORMATION
  Report Type: Report from Study
  Country: US (occurrence: US)
  Receive Date: 20161201
  Receipt Date: 20170220
  Transmission Date: 20170428
  Serious: No
  Sender: FDA-Public Use
  Company Number: US-AMGEN-USASL2016162120

PATIENT
  Age: 74 Year
  Sex: Female

DRUGS (2)
  1. ENBREL [Suspect]
     Active Substance: ETANERCEPT
     Dosage: 50 MG, QWK
     Route: 065
  2. ENBREL [Suspect]
     Active Substance: ETANERCEPT
     Indication: PSORIASIS
     Dosage: 50 MG, 2 TIMES/WK
     Route: 065

REACTIONS (5)
  - Drug dose omission [Unknown]
  - Stress [Unknown]
  - Diarrhoea [Recovered/Resolved]
  - Rash macular [Unknown]
  - Malaise [Unknown]

NARRATIVE: CASE EVENT DATE: 2016
